FAERS Safety Report 6804383-4 (Version None)
Quarter: 2010Q2

REPORT INFORMATION
  Report Type: 
  Country: None (occurrence: None)
  Receive Date: 20100628
  Receipt Date: 20070403
  Transmission Date: 20101027
  Serious: Yes (Other)
  Sender: FDA-Public Use
  Company Number: US-PFIZER INC-2007011667

PATIENT
  Age: 77 Year
  Sex: Male
  Weight: 61.7 kg

DRUGS (9)
  1. SUTENT [Suspect]
     Indication: RENAL CELL CARCINOMA
     Dates: end: 20070111
  2. FUROSEMIDE [Concomitant]
  3. COLCHICINE [Concomitant]
  4. ENALAPRIL MALEATE [Concomitant]
  5. LEVOTHYROXINE SODIUM [Concomitant]
  6. ASPIRIN [Concomitant]
  7. ATORVASTATIN [Concomitant]
  8. NIFEDIPINE [Concomitant]
  9. METOPROLOL [Concomitant]

REACTIONS (1)
  - EJECTION FRACTION DECREASED [None]
